FAERS Safety Report 7469595-8 (Version None)
Quarter: 2011Q2

REPORT INFORMATION
  Report Type: 
  Country: None (occurrence: None)
  Receive Date: 20110510
  Receipt Date: 20081103
  Transmission Date: 20111010
  Serious: Yes (Other)
  Sender: FDA-Public Use
  Company Number: US-BAYER-200837456NA

PATIENT
  Age: 65 Year
  Sex: Male
  Weight: 97.959 kg

DRUGS (31)
  1. NITROGLYCERIN [Concomitant]
     Dosage: 10MCG/MINUTE
     Route: 042
     Dates: start: 20060714
  2. HEPARIN [Concomitant]
     Dosage: 1000UNITS/HOUR
     Route: 042
     Dates: start: 20060714, end: 20060720
  3. HEPARIN [Concomitant]
     Dosage: 10000 U, UNK
     Route: 042
     Dates: start: 20060714
  4. TRASYLOL [Suspect]
     Indication: CORONARY ARTERY BYPASS
     Dosage: BOLUS
     Route: 042
     Dates: start: 20060714, end: 20060714
  5. DOPAMINE HCL [Concomitant]
     Indication: HYPOTENSION
     Dosage: UNK
     Route: 042
     Dates: start: 20060714
  6. HEPARIN [Concomitant]
     Dosage: 4000 U, BOLUS
     Route: 042
     Dates: start: 20060714, end: 20060720
  7. LEVOPHED [Concomitant]
     Indication: CARDIOPULMONARY BYPASS
     Dosage: TITRATE
     Route: 042
     Dates: start: 20060714
  8. MANNITOL [Concomitant]
     Dosage: UNK
     Dates: start: 20060714, end: 20060714
  9. RED BLOOD CELLS [Concomitant]
     Dosage: 2 U, UNK
     Route: 042
     Dates: start: 20060714
  10. PLASMA [Concomitant]
     Dosage: 2 U, UNK
     Route: 042
     Dates: start: 20060717
  11. TRASYLOL [Suspect]
     Indication: AORTIC VALVE REPLACEMENT
     Dosage: 50CC/HOUR
     Route: 042
     Dates: start: 20060714, end: 20060714
  12. ACETYLSALICYLIC ACID SRT [Concomitant]
     Dosage: 81 MG, QD
     Route: 048
     Dates: start: 19920101
  13. LASIX [Concomitant]
     Dosage: 20 MG, UNK
     Route: 042
     Dates: start: 20060714
  14. PANCURONIUM BROMIDE [Concomitant]
     Dosage: 6 MG, UNK
     Route: 042
     Dates: start: 20060714
  15. DOPAMINE HCL [Concomitant]
     Dosage: TITRATE
     Dates: start: 20060714
  16. PROTAMINE [Concomitant]
     Dosage: 350 G, UNK
     Route: 042
     Dates: start: 20060714
  17. PHENYLEPHRINE HCL [Concomitant]
     Indication: CARDIOPULMONARY BYPASS
     Dosage: TITRATE
     Route: 042
     Dates: start: 20060714
  18. EPINEPHRINE [Concomitant]
     Indication: CARDIOPULMONARY BYPASS
     Dosage: UNK
     Route: 042
     Dates: start: 20060714
  19. LIDOCAINE [Concomitant]
     Dosage: 100 MG, UNK
     Dates: start: 20060714, end: 20060714
  20. INDERAL [Concomitant]
     Indication: BLOOD PRESSURE MANAGEMENT
     Dosage: 160 MG, QD
     Dates: start: 19920101, end: 20060101
  21. HEPARIN [Concomitant]
     Dosage: 35000 U, UNK
     Route: 042
     Dates: start: 20060714
  22. ALBUMIN [ALBUMEN] [Concomitant]
     Dosage: 20 ML, UNK
     Route: 042
     Dates: start: 20060714, end: 20060714
  23. ZOCOR [Concomitant]
     Indication: BLOOD CHOLESTEROL INCREASED
     Dosage: 40 MG, QD
     Route: 048
     Dates: start: 20060101
  24. DESFLURANE [Concomitant]
     Dosage: TITRATE, INHALE
     Dates: start: 20060714, end: 20060714
  25. FENTANYL [Concomitant]
     Dosage: 2250 ?G, UNK
     Route: 042
     Dates: start: 20060714
  26. CEFAZOLIN [Concomitant]
     Dosage: 2 G, UNK
     Route: 042
     Dates: start: 20060714
  27. NORVASC [Concomitant]
     Dosage: 5 MG, QD
     Route: 048
     Dates: start: 20050101
  28. VERSED [Concomitant]
     Dosage: 10 MG, UNK
     Route: 042
     Dates: start: 20060714
  29. INSULIN [INSULIN] [Concomitant]
     Dosage: TITRATE
     Route: 042
     Dates: start: 20060714
  30. CARDIOPLEGIA [Concomitant]
     Dosage: 3800 ML, UNK
     Dates: start: 20060714, end: 20060714
  31. PLATELETS [Concomitant]
     Dosage: 12 U, UNK
     Route: 042
     Dates: start: 20060714

REACTIONS (13)
  - RENAL FAILURE [None]
  - UNEVALUABLE EVENT [None]
  - ANXIETY [None]
  - PAIN [None]
  - RENAL INJURY [None]
  - EMOTIONAL DISTRESS [None]
  - LARGE INTESTINE PERFORATION [None]
  - STRESS [None]
  - DEPRESSION [None]
  - MULTI-ORGAN FAILURE [None]
  - RENAL IMPAIRMENT [None]
  - FEAR [None]
  - SEPSIS [None]
